FAERS Safety Report 6103955-2 (Version None)
Quarter: 2009Q1

REPORT INFORMATION
  Report Type: 
  Country: None (occurrence: None)
  Receive Date: 20090305
  Receipt Date: 20090226
  Transmission Date: 20090719
  Serious: Yes (Hospitalization)
  Sender: FDA-Public Use
  Company Number: B0561569A

PATIENT
  Age: 56 Year
  Sex: Female
  Weight: 72 kg

DRUGS (2)
  1. MEPOLIZUMAB [Suspect]
     Route: 042
     Dates: start: 20080902
  2. CEFUROXIME AXETIL [Suspect]
     Indication: RESPIRATORY TRACT INFECTION
     Dates: start: 20090123, end: 20090126

REACTIONS (4)
  - ANAPHYLACTIC SHOCK [None]
  - RASH GENERALISED [None]
  - SYNCOPE [None]
  - URTICARIA [None]
